FAERS Safety Report 10590523 (Version 3)
Quarter: 2015Q1

REPORT INFORMATION
  Report Type: Spontaneous
  Country: AR (occurrence: AR)
  Receive Date: 20141118
  Receipt Date: 20150327
  Transmission Date: 20150720
  Serious: Yes (Hospitalization)
  Sender: FDA-Public Use
  Company Number: AR-PFIZER INC-2014314344

PATIENT
  Age: 69 Year
  Sex: Male

DRUGS (11)
  1. CELLCEPT [Concomitant]
     Active Substance: MYCOPHENOLATE MOFETIL\MYCOPHENOLATE MOFETIL HYDROCHLORIDE
     Dosage: UNK, 2X/DAY
  2. SUTENT [Suspect]
     Active Substance: SUNITINIB MALATE
     Indication: METASTATIC RENAL CELL CARCINOMA
     Dosage: 12.5 MG DAILY (WITHOUT REST)
     Dates: start: 20130307
  3. ASPIRINA PREVENT [Concomitant]
     Active Substance: ASPIRIN
     Dosage: UNK, 1X/DAY
  4. LEVOTHYROXINE [Concomitant]
     Active Substance: LEVOTHYROXINE
     Dosage: 125 MG, 1X/DAY
  5. HOLOMAGNESIO [Concomitant]
  6. ACIMED [Concomitant]
     Dosage: UNK, 2X/DAY
  7. FERRANIN COMPLEX [Concomitant]
     Dosage: UNK, 1X/DAY
  8. SUTENT [Suspect]
     Active Substance: SUNITINIB MALATE
     Dosage: 37.5 MG DAILY (WITHOUT REST)
  9. LOPID [Concomitant]
     Active Substance: GEMFIBROZIL
     Dosage: 900 MG, 1X/DAY
  10. SUTENT [Suspect]
     Active Substance: SUNITINIB MALATE
     Dosage: 25 MG DAILY (WITHOUT REST)
     Dates: start: 20130307
  11. DELTISONA [Concomitant]

REACTIONS (3)
  - Bacteraemia [Recovered/Resolved]
  - Pyrexia [Recovered/Resolved]
  - Hepatic infection bacterial [Recovered/Resolved]

NARRATIVE: CASE EVENT DATE: 201410
